FAERS Safety Report 7713110-8 (Version None)
Quarter: 2011Q3

REPORT INFORMATION
  Report Type: 
  Country: None (occurrence: None)
  Receive Date: 20110822
  Receipt Date: 20110811
  Transmission Date: 20111222
  Serious: Yes (Other)
  Sender: FDA-Public Use
  Company Number: MSTR-NO-1107S-0194

PATIENT
  Age: 75 Year
  Sex: Male
  Weight: 56 kg

DRUGS (1)
  1. METASTRON [Suspect]
     Indication: METASTATIC PAIN
     Dosage: 117 MBG, SINGLE DOSE, INTRAVENOUS
     Route: 042
     Dates: start: 20110413, end: 20110413

REACTIONS (3)
  - NEOPLASM PROGRESSION [None]
  - ANAEMIA [None]
  - PROSTATE CANCER METASTATIC [None]
